FAERS Safety Report 25879859 (Version 1)
Quarter: 2025Q4

REPORT INFORMATION
  Report Type: Spontaneous
  Country: AU (occurrence: AU)
  Receive Date: 20251004
  Receipt Date: 20251004
  Transmission Date: 20260118
  Serious: Yes (Other)
  Sender: CELLTRION
  Company Number: AU-CELLTRION INC.-2025AU035475

PATIENT

DRUGS (2)
  1. INFLIXIMAB [Suspect]
     Active Substance: INFLIXIMAB
     Indication: Crohn^s disease
     Dosage: 120 MG, FORTNIGHTLY
     Route: 058
     Dates: start: 20250212
  2. INFLIXIMAB [Suspect]
     Active Substance: INFLIXIMAB
     Dosage: 120 MG, FORTNIGHTLY (LAST DOSE 22ND OF SEPTEMBER)
     Route: 058

REACTIONS (2)
  - Condition aggravated [Unknown]
  - Fistula discharge [Unknown]

NARRATIVE: CASE EVENT DATE: 20250922
